FAERS Safety Report 4381319-X (Version None)
Quarter: 2004Q2

REPORT INFORMATION
  Report Type: 
  Country: None (occurrence: None)
  Receive Date: 20040621
  Receipt Date: 20040616
  Transmission Date: 20050107
  Serious: Yes (Hospitalization)
  Sender: FDA-Public Use
  Company Number: US-BRISTOL-MYERS SQUIBB COMPANY-12616876

PATIENT
  Age: 89 Year
  Sex: Male

DRUGS (8)
  1. POTASSIUM CHLORIDE [Suspect]
     Route: 048
     Dates: start: 20020529, end: 20020911
  2. LISINOPRIL [Suspect]
     Route: 048
  3. NAPROXEN [Suspect]
  4. DIPHENHYDRAMINE HCL [Concomitant]
  5. FLUOXETINE [Concomitant]
  6. MULTIVITAMIN [Concomitant]
  7. PROPOXYPHENE HCL [Concomitant]
  8. MULTIVITAMIN [Concomitant]

REACTIONS (2)
  - HYPERKALAEMIA [None]
  - RENAL FAILURE ACUTE [None]
